FAERS Safety Report 16255950 (Version 1)
Quarter: 2019Q2

REPORT INFORMATION
  Report Type: Spontaneous
  Country: US (occurrence: US)
  Receive Date: 20190429
  Receipt Date: 20190429
  Transmission Date: 20190711
  Serious: Yes (Other)
  Sender: FDA-Public Use
  Company Number: None

PATIENT
  Age: 63 Year
  Sex: Female
  Weight: 55.35 kg

DRUGS (1)
  1. PROLIA [Suspect]
     Active Substance: DENOSUMAB
     Indication: OSTEOPOROSIS
     Route: 058

REACTIONS (4)
  - Dental implantation [None]
  - Gingivitis [None]
  - Bone loss [None]
  - Osteonecrosis of jaw [None]

NARRATIVE: CASE EVENT DATE: 20190401
